FAERS Safety Report 9770905 (Version 1)
Quarter: 2013Q4

REPORT INFORMATION
  Report Type: Spontaneous
  Country: US (occurrence: US)
  Receive Date: 20131218
  Receipt Date: 20131218
  Transmission Date: 20140711
  Serious: No
  Sender: FDA-Public Use
  Company Number: US-BIOGENIDEC-2013BI120350

PATIENT
  Sex: Male

DRUGS (11)
  1. TECFIDERA [Suspect]
     Indication: MULTIPLE SCLEROSIS
     Route: 048
     Dates: start: 20131010
  2. AFRIN SINUS [Concomitant]
  3. AMANTADINE HCL [Concomitant]
  4. AVONEX PFS [Concomitant]
  5. EXCEDRIN TENSION HEADACHE [Concomitant]
  6. FINASTERIDE [Concomitant]
  7. FLUOXETINE HCL [Concomitant]
  8. LISINOPRIL-HYDROCHLOROTHIAZIDE [Concomitant]
  9. OMEPRAZOLE [Concomitant]
  10. OXYBUTYNIN CHLORIDE [Concomitant]
  11. PREDNISONE [Concomitant]

REACTIONS (1)
  - Dizziness [Unknown]
